FAERS Safety Report 4765966-9 (Version None)
Quarter: 2005Q3

REPORT INFORMATION
  Report Type: 
  Country: None (occurrence: None)
  Receive Date: 20050907
  Receipt Date: 20050826
  Transmission Date: 20060218
  Serious: Yes (Hospitalization)
  Sender: FDA-Public Use
  Company Number: WAES 0508DEU00002

PATIENT
  Age: 78 Year
  Sex: Male

DRUGS (2)
  1. HYZAAR [Suspect]
     Indication: HYPERTENSION
     Dosage: PO
     Route: 048
     Dates: start: 20040727, end: 20050403
  2. HYZAAR [Suspect]
     Indication: HYPERTENSION
     Dosage: PO
     Route: 048
     Dates: start: 20050801

REACTIONS (1)
  - COLON CANCER [None]
